FAERS Safety Report 6854385-7 (Version None)
Quarter: 2010Q3

REPORT INFORMATION
  Report Type: 
  Country: None (occurrence: None)
  Receive Date: 20100717
  Receipt Date: 20080104
  Transmission Date: 20110219
  Serious: No
  Sender: FDA-Public Use
  Company Number: US-PFIZER INC-2008002233

PATIENT
  Sex: Female
  Weight: 66.22 kg

DRUGS (4)
  1. CHANTIX [Suspect]
     Dates: start: 20071231, end: 20080103
  2. ALL OTHER THERAPEUTIC PRODUCTS [Concomitant]
  3. CYMBALTA [Concomitant]
  4. BUSPAR [Concomitant]

REACTIONS (9)
  - DIARRHOEA [None]
  - EMOTIONAL DISORDER [None]
  - FEELING COLD [None]
  - FLATULENCE [None]
  - HYPERHIDROSIS [None]
  - INSOMNIA [None]
  - MUSCLE SPASMS [None]
  - PERIPHERAL COLDNESS [None]
  - VISION BLURRED [None]
